FAERS Safety Report 25368861 (Version 1)
Quarter: 2025Q2

REPORT INFORMATION
  Report Type: Spontaneous
  Country: FR (occurrence: FR)
  Receive Date: 20250528
  Receipt Date: 20250528
  Transmission Date: 20250716
  Serious: Yes (Death)
  Sender: PFIZER
  Company Number: FR-PFIZER INC-PV202500063725

PATIENT

DRUGS (1)
  1. VOXELOTOR [Suspect]
     Active Substance: VOXELOTOR

REACTIONS (1)
  - Death [Fatal]
